FAERS Safety Report 8017278-8 (Version None)
Quarter: 2012Q1

REPORT INFORMATION
  Report Type: 
  Country: None (occurrence: None)
  Receive Date: 20120102
  Receipt Date: 20111229
  Transmission Date: 20120608
  Serious: Yes (Life-Threatening, Hospitalization)
  Sender: FDA-Public Use
  Company Number: PHEH2011US05273

PATIENT
  Sex: Female
  Weight: 61.224 kg

DRUGS (1)
  1. GILENYA [Suspect]
     Indication: MULTIPLE SCLEROSIS
     Dosage: 0.5 MG, QD
     Route: 048
     Dates: start: 20110919, end: 20111031

REACTIONS (7)
  - NEUTROPENIA [None]
  - HYPERHIDROSIS [None]
  - HEART RATE INCREASED [None]
  - ELECTROCARDIOGRAM ABNORMAL [None]
  - BACK PAIN [None]
  - CHEST PAIN [None]
  - PRURITUS [None]
